FAERS Safety Report 7461090-5 (Version None)
Quarter: 2011Q2

REPORT INFORMATION
  Report Type: 
  Country: None (occurrence: None)
  Receive Date: 20110505
  Receipt Date: 20110429
  Transmission Date: 20111010
  Serious: Yes (Hospitalization, Other)
  Sender: FDA-Public Use
  Company Number: US-AMGEN-USACT2011022466

PATIENT
  Age: 68 Year
  Sex: Male

DRUGS (3)
  1. PANITUMUMAB [Suspect]
     Indication: OESOPHAGEAL ADENOCARCINOMA
     Dosage: 6 MG/KG, Q2WK
     Route: 042
     Dates: start: 20101214
  2. CISPLATIN [Concomitant]
     Dosage: 40 MG/M2, Q2WK
     Route: 042
     Dates: start: 20101214
  3. DOCETAXEL [Concomitant]
     Dosage: 40 MG/M2, Q2WK
     Route: 042
     Dates: start: 20101214

REACTIONS (14)
  - ACIDOSIS [None]
  - GASTROINTESTINAL NECROSIS [None]
  - SINUS TACHYCARDIA [None]
  - PLEURAL EFFUSION [None]
  - MEDIASTINITIS [None]
  - HYPOXIA [None]
  - ACTIVATED PARTIAL THROMBOPLASTIN TIME PROLONGED [None]
  - LYMPHOCYTE COUNT DECREASED [None]
  - ANAEMIA [None]
  - HYPOALBUMINAEMIA [None]
  - HYPOCALCAEMIA [None]
  - HYPOPHOSPHATAEMIA [None]
  - PNEUMOTHORAX [None]
  - HYPOKALAEMIA [None]
